FAERS Safety Report 5577330-3 (Version None)
Quarter: 2007Q4

REPORT INFORMATION
  Report Type: 
  Country: None (occurrence: None)
  Receive Date: 20071228
  Receipt Date: 20071217
  Transmission Date: 20080405
  Serious: Yes (Other)
  Sender: FDA-Public Use
  Company Number: FR-PFIZER INC-2007106244

PATIENT
  Sex: Female

DRUGS (2)
  1. LYRICA [Suspect]
     Indication: NEURALGIA
  2. TRAMADOL HCL [Concomitant]

REACTIONS (3)
  - BLADDER DISTENSION [None]
  - CONSTIPATION [None]
  - URINARY RETENTION [None]
